FAERS Safety Report 18807787 (Version 1)
Quarter: 2021Q1

REPORT INFORMATION
  Report Type: Report from Study
  Country: None (occurrence: CA)
  Receive Date: 20210129
  Receipt Date: 20210129
  Transmission Date: 20210419
  Serious: Yes (Other)
  Sender: FDA-Public Use
  Company Number: CA-ABBVIE-21K-028-3746819-00

PATIENT
  Age: 42 Year
  Sex: Female

DRUGS (1)
  1. HUMIRA [Suspect]
     Active Substance: ADALIMUMAB
     Indication: CROHN^S DISEASE
     Route: 058
     Dates: start: 20200824

REACTIONS (6)
  - Sensitive skin [Not Recovered/Not Resolved]
  - Dermatitis infected [Unknown]
  - Oesophageal ulcer haemorrhage [Not Recovered/Not Resolved]
  - Infection [Not Recovered/Not Resolved]
  - Oesophageal ulcer [Unknown]
  - Drug eruption [Unknown]

NARRATIVE: CASE EVENT DATE: 202012
